FAERS Safety Report 15045016 (Version 1)
Quarter: 2018Q2

REPORT INFORMATION
  Report Type: Spontaneous
  Country: DE (occurrence: DE)
  Receive Date: 20180621
  Receipt Date: 20180621
  Transmission Date: 20180711
  Serious: Yes (Hospitalization)
  Sender: FDA-Public Use
  Company Number: DE-TEVA-2018-DE-911637

PATIENT
  Age: 38 Year
  Sex: Male

DRUGS (6)
  1. TAMSULOSIN [Concomitant]
     Active Substance: TAMSULOSIN
     Dosage: .4 MILLIGRAM DAILY;
     Route: 065
  2. ATORVASTATIN [Interacting]
     Active Substance: ATORVASTATIN
     Route: 065
  3. BISOPROLOL [Concomitant]
     Active Substance: BISOPROLOL
     Dosage: 5 MILLIGRAM DAILY;
     Route: 065
  4. OMEPRAZOL [Suspect]
     Active Substance: OMEPRAZOLE
     Route: 065
  5. CICLOSPORIN [Interacting]
     Active Substance: CYCLOSPORINE
     Dosage: 250 MILLIGRAM DAILY;
     Route: 065
  6. CANDESARTAN CILEXETIL AND HYDROCHLOROTHIAZIDE [Concomitant]
     Active Substance: CANDESARTAN CILEXETIL\HYDROCHLOROTHIAZIDE
     Dosage: 16|12.5 MG
     Route: 065

REACTIONS (6)
  - Acute kidney injury [Unknown]
  - Chest pain [Unknown]
  - Labelled drug-drug interaction medication error [Unknown]
  - Medication monitoring error [Unknown]
  - Abdominal pain [Unknown]
  - Drug prescribing error [Unknown]
